FAERS Safety Report 21455944 (Version 1)
Quarter: 2022Q4

REPORT INFORMATION
  Report Type: Spontaneous
  Country: CN (occurrence: CN)
  Receive Date: 20221014
  Receipt Date: 20221014
  Transmission Date: 20230113
  Serious: Yes (Other)
  Sender: FDA-Public Use
  Company Number: CN-SUN PHARMACEUTICAL INDUSTRIES LTD-2022R1-358751

PATIENT
  Age: 66 Year
  Sex: Male

DRUGS (2)
  1. TEMOZOLOMIDE [Suspect]
     Active Substance: TEMOZOLOMIDE
     Indication: Small cell lung cancer
     Dosage: UNK (300 MG ON DAYS 1-5, REPEATED EVERY 4 WEEKS, FOR TWO CYCLES)
     Route: 065
     Dates: end: 20210527
  2. TORIPALIMAB [Suspect]
     Active Substance: TORIPALIMAB
     Indication: Small cell lung cancer
     Dosage: UNK (240 MG ON DAY 1, REPEATED EVERY 3 WEEKS, FOR 2 CYCLES)
     Route: 065
     Dates: end: 20210527

REACTIONS (1)
  - Disease progression [Unknown]
